FAERS Safety Report 18451324 (Version 1)
Quarter: 2020Q4

REPORT INFORMATION
  Report Type: Spontaneous
  Country: TR (occurrence: TR)
  Receive Date: 20201102
  Receipt Date: 20201102
  Transmission Date: 20210114
  Serious: Yes (Life-Threatening, Hospitalization)
  Sender: FDA-Public Use
  Company Number: TR-MACLEODS PHARMACEUTICALS US LTD-MAC2020028857

PATIENT

DRUGS (4)
  1. QUETIAPINE 300 MG [Suspect]
     Active Substance: QUETIAPINE
     Indication: BIPOLAR DISORDER
     Dosage: 300 MILLIGRAM, QD
     Route: 065
  2. OLANZAPINE 10 MG [Suspect]
     Active Substance: OLANZAPINE
     Indication: BIPOLAR DISORDER
     Dosage: 10 MILLIGRAM, QD
     Route: 065
  3. OLANZAPINE 10 MG [Suspect]
     Active Substance: OLANZAPINE
     Dosage: 200 MILLIGRAM, SINGLE, INGESTION
     Route: 065
  4. QUETIAPINE 300 MG [Suspect]
     Active Substance: QUETIAPINE
     Dosage: 6 GRAM, SINGLE, INGESTION
     Route: 065

REACTIONS (5)
  - Toxicity to various agents [Recovering/Resolving]
  - Rhabdomyolysis [Recovering/Resolving]
  - Confusional state [Recovering/Resolving]
  - Suicide attempt [Unknown]
  - Intentional overdose [Recovering/Resolving]
